FAERS Safety Report 8590722-3 (Version None)
Quarter: 2012Q3

REPORT INFORMATION
  Report Type: 
  Country: None (occurrence: None)
  Receive Date: 20120801
  Receipt Date: 20120720
  Transmission Date: 20120928
  Serious: Yes (Disabling, Other)
  Sender: FDA-Public Use
  Company Number: US-INDICUS PHARMA-000012

PATIENT
  Sex: Female

DRUGS (1)
  1. METFORMIN HCL [Suspect]
     Indication: PRODUCT USED FOR UNKNOWN INDICATION
     Dates: start: 20120517

REACTIONS (4)
  - INFLUENZA LIKE ILLNESS [None]
  - URTICARIA [None]
  - EYE DISORDER [None]
  - VISUAL IMPAIRMENT [None]
